FAERS Safety Report 24941896 (Version 1)
Quarter: 2025Q1

REPORT INFORMATION
  Report Type: Spontaneous
  Country: US (occurrence: None)
  Receive Date: 20250206
  Receipt Date: 20250206
  Transmission Date: 20250408
  Serious: No
  Sender: FDA-CTU
  Company Number: None

PATIENT
  Age: 70 Year
  Sex: Female
  Weight: 58.5 kg

DRUGS (10)
  1. CARVEDILOL PHOSPHATE [Suspect]
     Active Substance: CARVEDILOL PHOSPHATE
     Indication: Cardiac failure
     Dosage: OTHER QUANTITY : 1 CAPSULE(S);?FREQUENCY : AT BEDTIME;?
     Route: 048
  2. ISOSORBIDE [Suspect]
     Active Substance: ISOSORBIDE
  3. LISINOPRIL [Suspect]
     Active Substance: LISINOPRIL
  4. ICD [Concomitant]
  5. PLAVIX [Concomitant]
     Active Substance: CLOPIDOGREL BISULFATE
  6. CRESTOR [Concomitant]
     Active Substance: ROSUVASTATIN CALCIUM
  7. LISINOPRIL [Concomitant]
     Active Substance: LISINOPRIL
  8. COENZYME Q10 [Concomitant]
     Active Substance: DIETARY SUPPLEMENT\UBIDECARENONE
  9. ENTERIC COATED ASPIRIN [Concomitant]
     Active Substance: ASPIRIN
  10. Turmeric-ginger tea [Concomitant]

REACTIONS (3)
  - Blood pressure decreased [None]
  - Dry mouth [None]
  - Asthenia [None]
